FAERS Safety Report 24943830 (Version 1)
Quarter: 2025Q1

REPORT INFORMATION
  Report Type: Report from Study
  Country: TR (occurrence: TR)
  Receive Date: 20250207
  Receipt Date: 20250207
  Transmission Date: 20250409
  Serious: Yes (Other)
  Sender: TEVA
  Company Number: TR-TEVA-VS-3293372

PATIENT
  Age: 22 Year
  Sex: Female

DRUGS (1)
  1. COPAXONE [Suspect]
     Active Substance: GLATIRAMER ACETATE
     Indication: Product used for unknown indication
     Route: 065
     Dates: start: 20250129

REACTIONS (8)
  - Deafness [Unknown]
  - Dizziness [Unknown]
  - Nausea [Unknown]
  - Oropharyngeal pain [Unknown]
  - Tinnitus [Unknown]
  - Injection site pain [Unknown]
  - Dysphagia [Unknown]
  - Immediate post-injection reaction [Unknown]

NARRATIVE: CASE EVENT DATE: 20250101
